FAERS Safety Report 4811344-3 (Version None)
Quarter: 2005Q4

REPORT INFORMATION
  Report Type: 
  Country: None (occurrence: None)
  Receive Date: 20051026
  Receipt Date: 20051026
  Transmission Date: 20060501
  Serious: Yes (Life-Threatening)
  Sender: FDA-Public Use
  Company Number: None

PATIENT
  Sex: Male

DRUGS (2)
  1. ISONIAZID INH 300MG WEST-WARD LOT!2A59703A [Suspect]
     Indication: TUBERCULIN TEST POSITIVE
     Dosage: 300MG TAKE 3 PILLS TWO TIMES A WEEK PO
     Route: 048
     Dates: start: 20051024, end: 20051024
  2. PYRIDOXINE B6 50MG [Suspect]
     Indication: TUBERCULIN TEST POSITIVE
     Dosage: 50MG TAKE 3 PILLS TWO TIMES A WEEK PO
     Route: 048
     Dates: start: 20051024, end: 20051025

REACTIONS (3)
  - BLOOD PRESSURE DECREASED [None]
  - DIZZINESS [None]
  - LETHARGY [None]
